FAERS Safety Report 25844194 (Version 1)
Quarter: 2025Q3

REPORT INFORMATION
  Report Type: Other
  Country: GB (occurrence: GB)
  Receive Date: 20250925
  Receipt Date: 20250925
  Transmission Date: 20251020
  Serious: Yes (Death, Other)
  Sender: APPCO PHARMA LLC
  Company Number: GB-Appco Pharma LLC-2185251

PATIENT
  Age: 45 Year
  Sex: Male

DRUGS (3)
  1. SERTRALINE [Suspect]
     Active Substance: SERTRALINE HYDROCHLORIDE
     Indication: Anxiety
  2. ZOPICLONE [Suspect]
     Active Substance: ZOPICLONE
  3. CITALOPRAM [Suspect]
     Active Substance: CITALOPRAM

REACTIONS (2)
  - Completed suicide [Fatal]
  - Drug ineffective [Unknown]
